FAERS Safety Report 25821757 (Version 1)
Quarter: 2025Q3

REPORT INFORMATION
  Report Type: Spontaneous
  Country: GB (occurrence: GB)
  Receive Date: 20250919
  Receipt Date: 20250919
  Transmission Date: 20251020
  Serious: Yes (Other)
  Sender: ALKEM
  Company Number: None

PATIENT
  Age: 29 Year
  Sex: Male
  Weight: 77 kg

DRUGS (1)
  1. TAMSULOSIN HYDROCHLORIDE [Suspect]
     Active Substance: TAMSULOSIN HYDROCHLORIDE
     Indication: Nephrolithiasis
     Route: 065
     Dates: start: 20250219

REACTIONS (1)
  - Retrograde ejaculation [Unknown]

NARRATIVE: CASE EVENT DATE: 20250220
